FAERS Safety Report 6081259-4 (Version None)
Quarter: 2009Q1

REPORT INFORMATION
  Report Type: 
  Country: None (occurrence: None)
  Receive Date: 20090213
  Receipt Date: 20090202
  Transmission Date: 20090719
  Serious: Yes (Death)
  Sender: FDA-Public Use
  Company Number: POMP-1000481

PATIENT
  Age: 2 Year
  Sex: Female

DRUGS (1)
  1. MYOZYME [Suspect]
     Indication: GLYCOGEN STORAGE DISEASE TYPE II
     Dosage: 20 MG/KG, Q2W, INTRAVENOUS
     Route: 042
     Dates: start: 20070201, end: 20090121

REACTIONS (5)
  - BRADYCARDIA [None]
  - CARDIAC DISORDER [None]
  - CYANOSIS [None]
  - OXYGEN SATURATION DECREASED [None]
  - RESPIRATORY ARREST [None]
